FAERS Safety Report 8687703 (Version 5)
Quarter: 2012Q4

REPORT INFORMATION
  Report Type: 
  Country: JP (occurrence: JP)
  Receive Date: 20120727
  Receipt Date: 20121109
  Transmission Date: 20130627
  Serious: Yes (Life-Threatening)
  Sender: FDA-Public Use
  Company Number: JP-ABBOTT-12P-087-0960854-00

PATIENT
  Age: 73 Year
  Sex: Male
  Weight: 60.8 kg

DRUGS (9)
  1. CLARITH 200 MG TAB [Suspect]
     Indication: PNEUMONIA
     Route: 048
     Dates: start: 20111225, end: 20111229
  2. CLARITH 200 MG TAB [Suspect]
     Route: 048
     Dates: start: 20120127, end: 20120202
  3. CEFAMEZIN [Suspect]
     Indication: PNEUMONIA
     Route: 050
     Dates: start: 20120111, end: 20120122
  4. CRAVIT [Suspect]
     Indication: PNEUMONIA
     Route: 048
     Dates: start: 20120113, end: 20120125
  5. MEDICON [Concomitant]
     Indication: PNEUMONIA
     Route: 048
     Dates: start: 20120113, end: 20120125
  6. TULOBUTEROL [Concomitant]
     Indication: COUGH
     Route: 062
     Dates: start: 20120119
  7. CODEINE PHOSPHATE [Concomitant]
     Indication: COUGH
     Route: 048
     Dates: start: 20120127, end: 20120202
  8. MUCOSOLVAN [Concomitant]
     Indication: PRODUCTIVE COUGH
     Route: 048
     Dates: start: 20120130, end: 20120202
  9. TAKEPRON [Concomitant]
     Indication: GASTROOESOPHAGEAL REFLUX DISEASE
     Route: 048
     Dates: start: 20120202, end: 20120208

REACTIONS (1)
  - Lung disorder [Recovering/Resolving]
